FAERS Safety Report 9450034 (Version 1)
Quarter: 2013Q3

REPORT INFORMATION
  Report Type: Spontaneous
  Country: PH (occurrence: PH)
  Receive Date: 20130809
  Receipt Date: 20130809
  Transmission Date: 20140515
  Serious: Yes (Other)
  Sender: FDA-Public Use
  Company Number: PH-009507513-1308PHL002521

PATIENT
  Age: 48 Year
  Sex: Female

DRUGS (1)
  1. JANUVIA [Suspect]
     Dosage: 1 TABLET ONCE A DAY
     Route: 048
     Dates: start: 201208

REACTIONS (1)
  - Breast cancer [Unknown]
